FAERS Safety Report 4980238-5 (Version None)
Quarter: 2006Q2

REPORT INFORMATION
  Report Type: 
  Country: None (occurrence: None)
  Receive Date: 20060418
  Receipt Date: 20060330
  Transmission Date: 20061013
  Serious: Yes (Death, Life-Threatening, Hospitalization)
  Sender: FDA-Public Use
  Company Number: JP200602000303

PATIENT
  Age: 70 Year
  Sex: Male
  Weight: 54.5 kg

DRUGS (11)
  1. GEMZAR [Suspect]
     Indication: NON-SMALL CELL LUNG CANCER RECURRENT
     Dosage: 1400 MG, OTHER, INTRAVENOUS
     Route: 042
     Dates: start: 20040617, end: 20050106
  2. NAVELBINE ^GLAXO WELLCOME' (VINORELBINE DITARTRATE) [Concomitant]
  3. KYTRIL [Concomitant]
  4. ORGADRONE (DEXAMETHASONE SODIUM PHOSPHATE) [Concomitant]
  5. BISOPROLOL FUMARATE [Concomitant]
  6. DEPAS (ETIZLAM) TABLET [Concomitant]
  7. RESLIN (TRAZODONE HYDROCHLORIDE) TABLET [Concomitant]
  8. MIGSIS (LOMERIZINE HYDROCHLORIDE) TABLET [Concomitant]
  9. ALTAT (ROXATIDINE ACETATE HYDROCHLORIDE) CAPSULE [Concomitant]
  10. AMOXAPINE [Concomitant]
  11. BAYASPIRIN (ACETYLSALICYLICA CID) TABLET [Concomitant]

REACTIONS (12)
  - ACUTE MYOCARDIAL INFARCTION [None]
  - ASPARTATE AMINOTRANSFERASE INCREASED [None]
  - ATRIAL FIBRILLATION [None]
  - BLOOD CREATINE PHOSPHOKINASE INCREASED [None]
  - BLOOD LACTATE DEHYDROGENASE INCREASED [None]
  - CARDIAC FAILURE [None]
  - CORONARY ARTERY STENOSIS [None]
  - MALIGNANT NEOPLASM PROGRESSION [None]
  - NON-SMALL CELL LUNG CANCER RECURRENT [None]
  - PNEUMONIA [None]
  - RESUSCITATION [None]
  - WHITE BLOOD CELL COUNT INCREASED [None]
